FAERS Safety Report 5623451-6 (Version None)
Quarter: 2008Q1

REPORT INFORMATION
  Report Type: 
  Country: None (occurrence: None)
  Receive Date: 20080212
  Receipt Date: 20080202
  Transmission Date: 20080703
  Serious: Yes (Hospitalization)
  Sender: FDA-Public Use
  Company Number: CA-ABBOTT-08P-028-0436802-00

PATIENT
  Sex: Female
  Weight: 59.02 kg

DRUGS (7)
  1. HUMIRA [Suspect]
     Indication: RHEUMATOID ARTHRITIS
     Route: 058
     Dates: start: 20060614
  2. ASPIRIN [Concomitant]
     Indication: DRUG USE FOR UNKNOWN INDICATION
  3. HYDROXYQUINE [Concomitant]
     Indication: DRUG USE FOR UNKNOWN INDICATION
  4. PANTALOC [Concomitant]
     Indication: DRUG USE FOR UNKNOWN INDICATION
  5. NABUMETONE [Concomitant]
     Indication: DRUG USE FOR UNKNOWN INDICATION
  6. PREDNISONE TAB [Concomitant]
     Indication: DRUG USE FOR UNKNOWN INDICATION
  7. RAMIPRIL [Concomitant]
     Indication: DRUG USE FOR UNKNOWN INDICATION

REACTIONS (4)
  - COUGH [None]
  - DYSPNOEA [None]
  - PERICARDIAL EFFUSION [None]
  - PULMONARY OEDEMA [None]
